FAERS Safety Report 10156618 (Version 1)
Quarter: 2014Q2

REPORT INFORMATION
  Report Type: Spontaneous
  Country: US (occurrence: None)
  Receive Date: 20140506
  Receipt Date: 20140506
  Transmission Date: 20141212
  Serious: Yes (Death)
  Sender: FDA-Public Use
  Company Number: None

PATIENT
  Age: 73 Year
  Sex: Male

DRUGS (7)
  1. AMIODARONE [Suspect]
     Indication: ATRIAL FIBRILLATION
     Dosage: VARIED
     Route: 042
     Dates: start: 20130305, end: 20130323
  2. ALUMINUM HYDROXIDE [Concomitant]
  3. ASPIRIN [Concomitant]
  4. HEPARIN [Concomitant]
  5. LANSOPRAZOLE [Concomitant]
  6. LORAZEPAM [Concomitant]
  7. PHENYLEPHRINE [Concomitant]

REACTIONS (4)
  - Respiratory failure [None]
  - Gastrointestinal haemorrhage [None]
  - Pharyngeal haemorrhage [None]
  - Post procedural complication [None]
